FAERS Safety Report 13926712 (Version 1)
Quarter: 2017Q3

REPORT INFORMATION
  Report Type: Spontaneous
  Country: US (occurrence: US)
  Receive Date: 20170831
  Receipt Date: 20170831
  Transmission Date: 20171127
  Serious: Yes (Other)
  Sender: FDA-Public Use
  Company Number: US-SUNOVION-2017SUN003819

PATIENT
  Age: 49 Year
  Sex: Male
  Weight: 58.5 kg

DRUGS (2)
  1. LITHIUM. [Concomitant]
     Active Substance: LITHIUM
     Indication: AFFECTIVE DISORDER
     Dosage: UNK
     Route: 048
  2. LATUDA [Suspect]
     Active Substance: LURASIDONE HYDROCHLORIDE
     Indication: BIPOLAR DISORDER
     Dosage: 40 MG (14 DAY SAMPLE PACK)
     Route: 048
     Dates: start: 20170811

REACTIONS (11)
  - Hot flush [Unknown]
  - Agitation [Unknown]
  - Anxiety [Unknown]
  - Nervousness [Unknown]
  - Somnolence [Unknown]
  - Suicidal ideation [Unknown]
  - Feelings of worthlessness [Unknown]
  - Feeling abnormal [Unknown]
  - Depressed mood [Unknown]
  - Insomnia [Unknown]
  - Confusional state [Unknown]

NARRATIVE: CASE EVENT DATE: 201708
